FAERS Safety Report 8245470-6 (Version None)
Quarter: 2012Q1

REPORT INFORMATION
  Report Type: 
  Country: None (occurrence: None)
  Receive Date: 20120329
  Receipt Date: 20120319
  Transmission Date: 20120608
  Serious: Yes (Hospitalization)
  Sender: FDA-Public Use
  Company Number: JP-MERCK-1203USA01210

PATIENT
  Age: 74 Year
  Sex: Male
  Weight: 63 kg

DRUGS (11)
  1. AMARYL [Concomitant]
     Indication: DIABETES MELLITUS
     Route: 048
     Dates: start: 20080101
  2. CELECOXIB [Concomitant]
     Route: 048
     Dates: start: 20080101
  3. JANUVIA [Suspect]
     Indication: DIABETES MELLITUS
     Route: 048
     Dates: start: 20120131, end: 20120214
  4. PLETAL [Concomitant]
     Route: 048
     Dates: start: 20080101
  5. SODIUM BICARBONATE [Concomitant]
     Route: 048
  6. METHYCOBAL [Concomitant]
     Route: 048
     Dates: start: 20080101
  7. ALLOPURINOL [Concomitant]
     Indication: HYPERURICAEMIA
     Route: 048
     Dates: start: 20080101
  8. CRESTOR [Concomitant]
     Indication: DYSLIPIDAEMIA
     Route: 048
     Dates: start: 20080101
  9. PEPCID [Concomitant]
     Route: 048
  10. MUCOSTA [Concomitant]
     Route: 048
     Dates: start: 20080101
  11. GLUCOBAY [Concomitant]
     Indication: DIABETES MELLITUS
     Route: 048
     Dates: start: 20080101

REACTIONS (3)
  - PYREXIA [None]
  - HEPATIC ENZYME INCREASED [None]
  - INFLAMMATION [None]
